FAERS Safety Report 9034808 (Version 1)
Quarter: 2013Q1

REPORT INFORMATION
  Report Type: Spontaneous
  Country: FR (occurrence: None)
  Receive Date: 20130115
  Receipt Date: 20130115
  Transmission Date: 20140127
  Serious: Yes (Death)
  Sender: FDA-Public Use
  Company Number: MC201300002

PATIENT
  Age: 82 Year
  Sex: Male

DRUGS (3)
  1. ANGIOMAX [Suspect]
     Indication: ACUTE CORONARY SYNDROME
     Dosage: 250 MG, INTRAVENOUS FOR 4 HRS
     Dates: start: 20121211
  2. BRILIQUE [Suspect]
     Dates: start: 20121211
  3. ASPEGIC [Suspect]
     Route: 048
     Dates: start: 20121211

REACTIONS (3)
  - Acute pulmonary oedema [None]
  - Shock haemorrhagic [None]
  - Haemoptysis [None]
